FAERS Safety Report 23365723 (Version 2)
Quarter: 2024Q1

REPORT INFORMATION
  Report Type: Spontaneous
  Country: FR (occurrence: FR)
  Receive Date: 20240104
  Receipt Date: 20240312
  Transmission Date: 20240409
  Serious: Yes (Other)
  Sender: FDA-Public Use
  Company Number: FR-SA-2024SA000236

PATIENT
  Age: 36 Year
  Sex: Female

DRUGS (4)
  1. DUPILUMAB [Suspect]
     Active Substance: DUPILUMAB
     Indication: Asthma
     Dosage: 300 MG, QOW
     Route: 058
     Dates: start: 202105
  2. MEPOLIZUMAB [Concomitant]
     Active Substance: MEPOLIZUMAB
     Indication: Asthma
     Dosage: UNK
  3. BENRALIZUMAB [Concomitant]
     Active Substance: BENRALIZUMAB
     Indication: Asthma
     Dosage: UNK
  4. CORTICOSTEROID NOS [Concomitant]
     Active Substance: CORTICOSTEROID NOS
     Indication: Asthma
     Dosage: 15 MG, QD

REACTIONS (4)
  - Eosinophilic granulomatosis with polyangiitis [Recovering/Resolving]
  - Neuritis [Recovering/Resolving]
  - Paraesthesia [Recovering/Resolving]
  - Motor dysfunction [Recovering/Resolving]

NARRATIVE: CASE EVENT DATE: 20220101
